FAERS Safety Report 25157506 (Version 2)
Quarter: 2025Q2

REPORT INFORMATION
  Report Type: Spontaneous
  Country: US (occurrence: US)
  Receive Date: 20250403
  Receipt Date: 20250410
  Transmission Date: 20250717
  Serious: Yes (Other)
  Sender: VERTEX
  Company Number: US-VERTEX PHARMACEUTICALS-2025-004809

PATIENT
  Sex: Female

DRUGS (1)
  1. ALYFTREK [Suspect]
     Active Substance: DEUTIVACAFTOR\TEZACAFTOR\VANZACAFTOR
     Indication: Cystic fibrosis
     Route: 048
     Dates: start: 2025

REACTIONS (11)
  - Drug-induced liver injury [Unknown]
  - Rash [Unknown]
  - Personality change [Unknown]
  - Sinus disorder [Not Recovered/Not Resolved]
  - Implant site discolouration [Not Recovered/Not Resolved]
  - Gastrointestinal disorder [Not Recovered/Not Resolved]
  - Panic disorder [Unknown]
  - Anxiety [Unknown]
  - Blunted affect [Unknown]
  - Mental disorder [Unknown]
  - Depression [Unknown]
